FAERS Safety Report 16091073 (Version 1)
Quarter: 2019Q1

REPORT INFORMATION
  Report Type: Spontaneous
  Country: ES (occurrence: ES)
  Receive Date: 20190319
  Receipt Date: 20190319
  Transmission Date: 20190418
  Serious: Yes (Other)
  Sender: FDA-Public Use
  Company Number: ES-BAYER-2019-022511

PATIENT
  Age: 75 Year
  Sex: Male

DRUGS (5)
  1. NEXAVAR [Suspect]
     Active Substance: SORAFENIB
     Dosage: 200 MG QD
     Route: 048
  2. NEXAVAR [Suspect]
     Active Substance: SORAFENIB
     Dosage: 400 MG, BID
     Route: 048
  3. NEXAVAR [Suspect]
     Active Substance: SORAFENIB
     Dosage: 400 MG, QD
     Route: 048
  4. NEXAVAR [Suspect]
     Active Substance: SORAFENIB
     Dosage: 400 MG, QD
     Route: 048
  5. NEXAVAR [Suspect]
     Active Substance: SORAFENIB
     Dosage: 400 MG, BID
     Route: 048

REACTIONS (6)
  - Drug intolerance [None]
  - Disease progression [None]
  - Asthenia [None]
  - Diarrhoea [None]
  - Nausea [None]
  - General physical health deterioration [None]
